FAERS Safety Report 10344228 (Version 2)
Quarter: 2014Q3

REPORT INFORMATION
  Report Type: Spontaneous
  Country: US (occurrence: US)
  Receive Date: 20140728
  Receipt Date: 20140728
  Transmission Date: 20150326
  Serious: Yes (Other)
  Sender: FDA-Public Use
  Company Number: US-UCBSA-2014001948

PATIENT
  Age: 36 Year
  Sex: Female
  Weight: 56 kg

DRUGS (3)
  1. 6-MP [Concomitant]
     Active Substance: MERCAPTOPURINE
     Dosage: UNK
  2. LEVAQUIN [Concomitant]
     Active Substance: LEVOFLOXACIN
     Dosage: UNK
  3. CIMZIA [Suspect]
     Active Substance: CERTOLIZUMAB PEGOL
     Indication: CROHN^S DISEASE
     Dosage: 400 MG, EV 2 WEEKS(QOW), 3 DOSES OVER 6 WEEKS
     Route: 058
     Dates: start: 20140425, end: 20140611

REACTIONS (5)
  - Decreased appetite [Recovered/Resolved]
  - Pyrexia [Not Recovered/Not Resolved]
  - Drug ineffective [Unknown]
  - Rectal abscess [Recovered/Resolved]
  - Inflammation [Not Recovered/Not Resolved]

NARRATIVE: CASE EVENT DATE: 201404
